FAERS Safety Report 6445578-1 (Version None)
Quarter: 2009Q4

REPORT INFORMATION
  Report Type: 
  Country: None (occurrence: None)
  Receive Date: 20091110
  Receipt Date: 20090827
  Transmission Date: 20100525
  Serious: No
  Sender: FDA-Public Use
  Company Number: 1000008502

PATIENT
  Age: 64 Year
  Sex: Female

DRUGS (24)
  1. SAVELLA [Suspect]
     Indication: FIBROMYALGIA
     Dosage: 12.5 MG (12.5 MG, 1 IN 1 D), ORAL : 25 MG (12.5 MG, 2 IN 1 D), ORAL : 50 MG (25 MG, 2 IN 1 D), ORAL
     Route: 048
     Dates: start: 20090819, end: 20090820
  2. SAVELLA [Suspect]
     Indication: FIBROMYALGIA
     Dosage: 12.5 MG (12.5 MG, 1 IN 1 D), ORAL : 25 MG (12.5 MG, 2 IN 1 D), ORAL : 50 MG (25 MG, 2 IN 1 D), ORAL
     Route: 048
     Dates: start: 20090821, end: 20090824
  3. SAVELLA [Suspect]
     Indication: FIBROMYALGIA
     Dosage: 12.5 MG (12.5 MG, 1 IN 1 D), ORAL : 25 MG (12.5 MG, 2 IN 1 D), ORAL : 50 MG (25 MG, 2 IN 1 D), ORAL
     Route: 048
     Dates: start: 20090825
  4. COMBIVENT [Concomitant]
  5. SEREVENT [Concomitant]
  6. CRESTOR [Concomitant]
  7. SPIRONOLACTONE [Concomitant]
  8. TORSEMIDE [Concomitant]
  9. THYROID TAB [Concomitant]
  10. PREMARIN [Concomitant]
  11. CLONAZEPAM [Concomitant]
  12. PREVACID [Concomitant]
  13. BONIVA [Concomitant]
  14. KLOR-CON [Concomitant]
  15. ENALAPRIL [Concomitant]
  16. METHYL PROGESTERONE [Concomitant]
  17. CENTRUM VITAMINS [Concomitant]
  18. OSCAL [Concomitant]
  19. COLACE [Concomitant]
  20. MAGNESIUM OXIDE [Concomitant]
  21. METAMUCIL [Concomitant]
  22. COENZYME Q10 [Concomitant]
  23. FISH OIL [Concomitant]
  24. ZYRTEC [Concomitant]

REACTIONS (1)
  - ASTHMA [None]
